FAERS Safety Report 16027530 (Version 1)
Quarter: 2019Q1

REPORT INFORMATION
  Report Type: Spontaneous
  Country: US (occurrence: US)
  Receive Date: 20190304
  Receipt Date: 20190304
  Transmission Date: 20190418
  Serious: Yes (Other)
  Sender: FDA-Public Use
  Company Number: US-SA-2019SA056624

PATIENT
  Age: 55 Year
  Sex: Female

DRUGS (14)
  1. FUROSEMIDE. [Concomitant]
     Active Substance: FUROSEMIDE
  2. ZONISAMIDE. [Concomitant]
     Active Substance: ZONISAMIDE
  3. POTASSIUM [Concomitant]
     Active Substance: POTASSIUM
  4. AUBAGIO [Suspect]
     Active Substance: TERIFLUNOMIDE
     Dosage: 1 DF, QD
     Route: 048
     Dates: start: 20190212
  5. LAMICTAL [Concomitant]
     Active Substance: LAMOTRIGINE
  6. PROMETHAZINE [Concomitant]
     Active Substance: PROMETHAZINE\PROMETHAZINE HYDROCHLORIDE
  7. COLACE [Concomitant]
     Active Substance: DOCUSATE SODIUM
  8. VITAMIN D [Concomitant]
     Active Substance: CHOLECALCIFEROL
  9. MULTIVITAMIN [ASCORBIC ACID;BIOTIN;CALCIUM PANTOTHENATE;CYANOCOBALAMIN [Concomitant]
     Active Substance: VITAMINS
  10. TYLENOL [Concomitant]
     Active Substance: ACETAMINOPHEN
  11. KEPPRA [Concomitant]
     Active Substance: LEVETIRACETAM
  12. PREDNISONE. [Concomitant]
     Active Substance: PREDNISONE
  13. BACLOFEN. [Concomitant]
     Active Substance: BACLOFEN
  14. ZOLOFT [Concomitant]
     Active Substance: SERTRALINE HYDROCHLORIDE

REACTIONS (10)
  - Back pain [Not Recovered/Not Resolved]
  - Depression [Not Recovered/Not Resolved]
  - Speech disorder [Not Recovered/Not Resolved]
  - Bladder catheterisation [Not Recovered/Not Resolved]
  - Dementia [Not Recovered/Not Resolved]
  - Muscle spasticity [Not Recovered/Not Resolved]
  - Pain in extremity [Not Recovered/Not Resolved]
  - Dizziness [Not Recovered/Not Resolved]
  - Multiple sclerosis [Not Recovered/Not Resolved]
  - Fatigue [Not Recovered/Not Resolved]
